FAERS Safety Report 20100156 (Version 2)
Quarter: 2021Q4

REPORT INFORMATION
  Report Type: Report from Study
  Country: PA (occurrence: PA)
  Receive Date: 20211123
  Receipt Date: 20211210
  Transmission Date: 20220303
  Serious: Yes (Other)
  Sender: FDA-Public Use
  Company Number: PA-NOVARTISPH-NVSC2021PA265787

PATIENT
  Sex: Male
  Weight: 89 kg

DRUGS (3)
  1. EXFORGE [Suspect]
     Active Substance: AMLODIPINE BESYLATE\VALSARTAN
     Indication: Hypertension
     Dosage: 1 DOSAGE FORM, QD (APPROXIMATELY 4 MOTHS AGO)
     Route: 048
     Dates: end: 20211117
  2. METFORMIN [Concomitant]
     Active Substance: METFORMIN HYDROCHLORIDE
     Indication: Product used for unknown indication
     Dosage: 850 MG, QD (APPROXIMATELY 8 YEARS AGO)
     Route: 065
  3. INSULIN NOS [Concomitant]
     Active Substance: INSULIN NOS
     Indication: Diabetes mellitus
     Dosage: UNK 14 UNIT (APPROXIMATELY 2 YEARS AGO)
     Route: 065

REACTIONS (3)
  - Hypertension [Unknown]
  - Drug intolerance [Unknown]
  - Drug ineffective [Unknown]
